FAERS Safety Report 18697649 (Version 3)
Quarter: 2021Q2

REPORT INFORMATION
  Report Type: Report from Study
  Country: BR (occurrence: BR)
  Receive Date: 20210105
  Receipt Date: 20210427
  Transmission Date: 20210717
  Serious: Yes (Hospitalization, Other)
  Sender: FDA-Public Use
  Company Number: BR-TAKEDA-BR201923934

PATIENT
  Age: 16 Year
  Sex: Male
  Weight: 39 kg

DRUGS (3)
  1. RISPERIDONE. [Concomitant]
     Active Substance: RISPERIDONE
     Indication: PRODUCT USED FOR UNKNOWN INDICATION
     Dosage: UNK
     Route: 065
  2. IDURSULFASE [Suspect]
     Active Substance: IDURSULFASE
     Indication: MUCOPOLYSACCHARIDOSIS II
     Dosage: 4 DOSAGE FORM (AMPOULES, 9.5 MILLILITER (0.05 MG/KG)), 1X/WEEK (ONCE EVERY 7 DAYS)
     Route: 050
  3. IDURSULFASE [Suspect]
     Active Substance: IDURSULFASE
     Dosage: 4 MILLIGRAM/KILOGRAM, 1/WEEK
     Route: 042
     Dates: start: 20180501

REACTIONS (9)
  - Suspected COVID-19 [Unknown]
  - Pneumonia [Recovered/Resolved]
  - Rhinitis [Recovering/Resolving]
  - Respiratory tract infection [Recovered/Resolved]
  - Fatigue [Recovering/Resolving]
  - Incorrect dose administered [Unknown]
  - Weight decreased [Unknown]
  - Cough [Recovering/Resolving]
  - Inappropriate schedule of product administration [Unknown]

NARRATIVE: CASE EVENT DATE: 20210419
